FAERS Safety Report 5202169-8 (Version None)
Quarter: 2006Q4

REPORT INFORMATION
  Report Type: 
  Country: None (occurrence: None)
  Receive Date: 20061010
  Receipt Date: 20060614
  Transmission Date: 20070319
  Serious: Yes (Hospitalization)
  Sender: FDA-Public Use
  Company Number: 2006P1000338

PATIENT
  Age: 69 Year
  Sex: Male
  Weight: 89 kg

DRUGS (4)
  1. RETEPLASE (RETEPLASE) [Suspect]
     Indication: ACUTE MYOCARDIAL INFARCTION
     Dosage: 5 IU; 2X; IV
     Route: 042
     Dates: start: 20060529, end: 20060529
  2. ABCIXIMAB (ABCIXIMAB) [Suspect]
     Indication: ACUTE MYOCARDIAL INFARCTION
     Dosage: 11.1 ML; 1X; IVBOL; 4.0 ML; QH; IV
     Route: 040
     Dates: start: 20060529, end: 20060529
  3. ABCIXIMAB (ABCIXIMAB) [Suspect]
     Indication: ACUTE MYOCARDIAL INFARCTION
     Dosage: 11.1 ML; 1X; IVBOL; 4.0 ML; QH; IV
     Route: 040
     Dates: start: 20060529, end: 20060529
  4. ABCIXIMAB (ABCIXIMAB) [Suspect]

REACTIONS (1)
  - CARDIAC FAILURE [None]
